FAERS Safety Report 20874888 (Version 1)
Quarter: 2022Q2

REPORT INFORMATION
  Report Type: Spontaneous
  Country: DE (occurrence: DE)
  Receive Date: 20220526
  Receipt Date: 20220526
  Transmission Date: 20220721
  Serious: Yes (Other)
  Sender: FDA-Public Use
  Company Number: DE-NOVARTISPH-NVSC2022DE118545

PATIENT
  Sex: Male
  Weight: 3.7 kg

DRUGS (2)
  1. LEVETIRACETAM [Suspect]
     Active Substance: LEVETIRACETAM
     Indication: Foetal exposure during pregnancy
     Dosage: MATERNAL DOSE: THREE DAILY INTAKES AND ELEVATED DURING PREGNANCY
     Route: 064
  2. LAMOTRIGINE [Suspect]
     Active Substance: LAMOTRIGINE
     Indication: Foetal exposure during pregnancy
     Dosage: MATERNAL DOSE: THREE DAILY INTAKES AND ELEVATED DURING PREGNANCY
     Route: 064

REACTIONS (2)
  - Respiratory disorder neonatal [Unknown]
  - Foetal exposure during pregnancy [Unknown]
